FAERS Safety Report 6396033-9 (Version None)
Quarter: 2009Q4

REPORT INFORMATION
  Report Type: 
  Country: None (occurrence: None)
  Receive Date: 20091009
  Receipt Date: 20090929
  Transmission Date: 20100525
  Serious: Yes (Other)
  Sender: FDA-Public Use
  Company Number: CH-ELI_LILLY_AND_COMPANY-CH200909007112

PATIENT
  Age: 55 Year
  Sex: Female

DRUGS (16)
  1. ZYPREXA [Suspect]
     Dosage: 10 MG, DAILY (1/D)
     Route: 065
  2. PRAVASTATIN [Concomitant]
     Indication: HYPERLIPIDAEMIA
     Dosage: UNK, UNKNOWN
     Route: 065
  3. SERTRALINE HCL [Concomitant]
     Indication: ANTIDEPRESSANT THERAPY
     Dosage: 100 MG, DAILY (1/D)
     Route: 065
  4. SERTRALINE HCL [Concomitant]
     Dosage: 150 MG, DAILY (1/D)
     Route: 065
  5. SERTRALINE HCL [Concomitant]
     Dosage: 200 MG, DAILY (1/D)
     Route: 065
  6. LITHIUM CARBONATE [Concomitant]
     Indication: AFFECTIVE DISORDER
     Dosage: 625 MG, DAILY (1/D)
     Route: 065
  7. LITHIUM CARBONATE [Concomitant]
     Dosage: 900 MG, DAILY (1/D)
     Route: 065
  8. ARIPIPRAZOLE [Concomitant]
     Dosage: 60 MG, DAILY (1/D)
     Route: 065
  9. ARIPIPRAZOLE [Concomitant]
     Dosage: 45 MG, DAILY (1/D)
     Route: 065
  10. ARIPIPRAZOLE [Concomitant]
     Dosage: 30 MG, DAILY (1/D)
     Route: 065
  11. QUETIAPINE [Concomitant]
     Dosage: 200 MG, DAILY (1/D)
     Route: 065
  12. LORAZEPAM [Concomitant]
     Dosage: 4 MG, DAILY (1/D)
     Route: 065
  13. LORAZEPAM [Concomitant]
     Dosage: 3 MG, DAILY (1/D)
     Route: 065
  14. LORAZEPAM [Concomitant]
     Dosage: 2 MG, DAILY (1/D)
     Route: 065
  15. MAGNESIUM [Concomitant]
     Dosage: 7.5 MG, DAILY (1/D)
     Route: 065
  16. LEVOTHYROXINE [Concomitant]
     Dosage: 0.05 MG, DAILY (1/D)
     Route: 065

REACTIONS (3)
  - HYPERLIPIDAEMIA [None]
  - RASH ERYTHEMATOUS [None]
  - WEIGHT INCREASED [None]
